FAERS Safety Report 22325725 (Version 1)
Quarter: 2023Q2

REPORT INFORMATION
  Report Type: Spontaneous
  Country: US (occurrence: US)
  Receive Date: 20230516
  Receipt Date: 20230516
  Transmission Date: 20230721
  Serious: No
  Sender: FDA-Public Use
  Company Number: US-MYLANLABS-2023M1048619

PATIENT
  Sex: Female

DRUGS (1)
  1. CLONIDINE TRANSDERMAL SYSTEM [Suspect]
     Active Substance: CLONIDINE
     Indication: Blood pressure abnormal
     Dosage: 0.1 MILLIGRAM, QD (APPLIED ONCE WEEKLY)
     Route: 062
     Dates: start: 202303

REACTIONS (2)
  - Product residue present [Unknown]
  - Application site rash [Unknown]
